FAERS Safety Report 9916944 (Version 1)
Quarter: 2014Q1

REPORT INFORMATION
  Report Type: Spontaneous
  Country: AU (occurrence: AU)
  Receive Date: 20140221
  Receipt Date: 20140221
  Transmission Date: 20141002
  Serious: Yes (Other)
  Sender: FDA-Public Use
  Company Number: AU-PURDUE-USA-2014-0111323

PATIENT
  Age: 24 Year
  Sex: Male

DRUGS (1)
  1. OXYCONTIN (NDA 22-272) [Suspect]
     Indication: PRODUCT USED FOR UNKNOWN INDICATION

REACTIONS (10)
  - Drug abuse [Unknown]
  - Homicide [Unknown]
  - Needle track marks [Unknown]
  - Laceration [Unknown]
  - Abnormal behaviour [Unknown]
  - Speech disorder [Unknown]
  - Anger [Unknown]
  - Anxiety [Unknown]
  - Agitation [Unknown]
  - Nervousness [Unknown]
